FAERS Safety Report 9492217 (Version 1)
Quarter: 2013Q3

REPORT INFORMATION
  Report Type: Spontaneous
  Country: FR (occurrence: FR)
  Receive Date: 20130830
  Receipt Date: 20130830
  Transmission Date: 20140515
  Serious: Yes (Hospitalization)
  Sender: FDA-Public Use
  Company Number: FR-BAXTER-2013BAX033154

PATIENT
  Age: 77 Year
  Sex: Female

DRUGS (3)
  1. ENDOXAN 2000 MG, LYOPHILISAT POUR SOLUTION INJECTABLE [Suspect]
     Indication: GLOMERULONEPHRITIS MEMBRANOUS
     Route: 065
     Dates: end: 201302
  2. CORTANCYL [Concomitant]
     Indication: PRODUCT USED FOR UNKNOWN INDICATION
     Route: 065
  3. MIRCERA [Concomitant]
     Indication: PRODUCT USED FOR UNKNOWN INDICATION
     Route: 065

REACTIONS (3)
  - Pancytopenia [Recovered/Resolved]
  - Renal failure acute [Unknown]
  - Anaemia [Recovered/Resolved]
